FAERS Safety Report 6395583-9 (Version None)
Quarter: 2009Q4

REPORT INFORMATION
  Report Type: 
  Country: None (occurrence: None)
  Receive Date: 20091009
  Receipt Date: 20091002
  Transmission Date: 20100525
  Serious: Yes (Hospitalization, Other)
  Sender: FDA-Public Use
  Company Number: US-BRISTOL-MYERS SQUIBB COMPANY-14805063

PATIENT
  Age: 64 Year
  Sex: Female
  Weight: 72 kg

DRUGS (10)
  1. ORENCIA [Suspect]
     Indication: RHEUMATOID ARTHRITIS
     Dosage: STARTED ABOUT 2 YEARS AGO.
  2. CLINDAMYCIN [Suspect]
     Dosage: RESTARTED AT A LOWER DOSE
  3. VANCOMYCIN [Suspect]
     Dosage: 22 DAYS INTO A 25 DAY COURSE
  4. SYMBICORT [Concomitant]
     Dosage: 2 DF- 2 PUFFS
  5. LEXAPRO [Concomitant]
  6. ANTIHISTAMINE NOS [Concomitant]
  7. ACIPHEX [Concomitant]
  8. PROVIGIL [Concomitant]
  9. VITAMINS [Concomitant]
  10. MINERAL TAB [Concomitant]

REACTIONS (11)
  - BRONCHITIS [None]
  - CELLULITIS [None]
  - CLOSTRIDIAL INFECTION [None]
  - FOOD POISONING [None]
  - HEPATOTOXICITY [None]
  - HERPES VIRUS INFECTION [None]
  - NEPHROPATHY TOXIC [None]
  - PNEUMONIA [None]
  - RHEUMATOID ARTHRITIS [None]
  - STAPHYLOCOCCAL INFECTION [None]
  - TYMPANIC MEMBRANE PERFORATION [None]
